FAERS Safety Report 18716038 (Version 6)
Quarter: 2021Q4

REPORT INFORMATION
  Report Type: Spontaneous
  Country: US (occurrence: US)
  Receive Date: 20210108
  Receipt Date: 20211126
  Transmission Date: 20220303
  Serious: No
  Sender: FDA-Public Use
  Company Number: US-PFIZER INC-2018273596

PATIENT
  Age: 13 Year
  Sex: Male
  Weight: 46.25 kg

DRUGS (4)
  1. GENOTROPIN [Suspect]
     Active Substance: SOMATROPIN
     Indication: Hypopituitarism
     Dosage: 2.2 MG, (ONCE,6 TIMES A WEEK)
     Dates: start: 201801
  2. GENOTROPIN [Suspect]
     Active Substance: SOMATROPIN
     Indication: Growth hormone deficiency
     Dosage: UNK
  3. GENOTROPIN [Suspect]
     Active Substance: SOMATROPIN
     Dosage: 1.2 MG(PRESCRIPTION:2.4 MG, 1X/DAY (6 TIMES A WEEK))
  4. GENOTROPIN [Suspect]
     Active Substance: SOMATROPIN
     Dosage: 2.2 MG (6 DAYS A WEEK)
     Dates: start: 20180223

REACTIONS (6)
  - Drug dose omission by device [Unknown]
  - Device difficult to use [Unknown]
  - Device breakage [Unknown]
  - Poor quality device used [Unknown]
  - Incorrect dose administered [Unknown]
  - Device leakage [Unknown]

NARRATIVE: CASE EVENT DATE: 20180601
